FAERS Safety Report 9991595 (Version 2)
Quarter: 2014Q2

REPORT INFORMATION
  Report Type: Spontaneous
  Country: US (occurrence: US)
  Receive Date: 20140310
  Receipt Date: 20140515
  Transmission Date: 20141212
  Serious: Yes (Other)
  Sender: FDA-Public Use
  Company Number: US-BAYER-2014-034657

PATIENT
  Age: 37 Year
  Sex: Female
  Weight: 79.37 kg

DRUGS (1)
  1. MIRENA [Suspect]
     Indication: CONTRACEPTION
     Dosage: 20 MCG/24HR, CONT
     Route: 015
     Dates: start: 2009, end: 20101110

REACTIONS (6)
  - Uterine perforation [None]
  - Injury [None]
  - Abdominal pain lower [None]
  - Device difficult to use [None]
  - Depression [None]
  - Anxiety [None]
